FAERS Safety Report 23152863 (Version 13)
Quarter: 2025Q3

REPORT INFORMATION
  Report Type: Report from Study
  Country: EU (occurrence: EU)
  Receive Date: 20231107
  Receipt Date: 20250812
  Transmission Date: 20251020
  Serious: Yes (Death, Hospitalization, Other)
  Sender: AMGEN
  Company Number: EU-SA-SAC20230704000557

PATIENT
  Age: 67 Year
  Sex: Male
  Weight: 84.1 kg

DRUGS (46)
  1. CARFILZOMIB [Suspect]
     Active Substance: CARFILZOMIB
     Indication: Plasma cell myeloma refractory
     Dosage: 20 MILLIGRAM/SQ. METER, 2 TIMES/WK
     Route: 065
     Dates: start: 20230622, end: 20230628
  2. CARFILZOMIB [Suspect]
     Active Substance: CARFILZOMIB
     Indication: Plasma cell myeloma
     Dosage: 56 MILLIGRAM/SQ. METER, 2 TIMES/WK
     Route: 065
     Dates: start: 20230629, end: 20230713
  3. CARFILZOMIB [Suspect]
     Active Substance: CARFILZOMIB
     Dosage: 20 MILLIGRAM/SQ. METER, 2 TIMES/WK
     Route: 065
     Dates: start: 20230720, end: 20230726
  4. CARFILZOMIB [Suspect]
     Active Substance: CARFILZOMIB
     Dosage: 56 MILLIGRAM/SQ. METER, 2 TIMES/WK
     Route: 065
     Dates: start: 20230727, end: 20230810
  5. CARFILZOMIB [Suspect]
     Active Substance: CARFILZOMIB
     Dosage: 20 MILLIGRAM/SQ. METER, 2 TIMES/WK
     Route: 065
     Dates: start: 20230817, end: 20230823
  6. CARFILZOMIB [Suspect]
     Active Substance: CARFILZOMIB
     Dosage: 56 MILLIGRAM/SQ. METER, 2 TIMES/WK
     Route: 065
     Dates: start: 20230824, end: 20230908
  7. CARFILZOMIB [Suspect]
     Active Substance: CARFILZOMIB
     Dosage: 56 MILLIGRAM/SQ. METER, 2 TIMES/WK
     Route: 065
     Dates: start: 20230921, end: 20231013
  8. CARFILZOMIB [Suspect]
     Active Substance: CARFILZOMIB
     Dosage: 56 MILLIGRAM/SQ. METER, 2 TIMES/WK
     Route: 065
     Dates: start: 20231026, end: 20231102
  9. ISATUXIMAB [Suspect]
     Active Substance: ISATUXIMAB
     Indication: Plasma cell myeloma refractory
     Dosage: 10 MILLIGRAM/KILOGRAM, QWK  10 MG/KG, QW
     Route: 065
     Dates: start: 20230622, end: 20230713
  10. ISATUXIMAB [Suspect]
     Active Substance: ISATUXIMAB
     Indication: Plasma cell myeloma
     Dosage: 20 MILLIGRAM/KILOGRAM, QWK 10 MG/KG, BIW
     Route: 065
     Dates: start: 20230720, end: 20230810
  11. ISATUXIMAB [Suspect]
     Active Substance: ISATUXIMAB
     Dosage: 20 MILLIGRAM/KILOGRAM, QWK, 10 MG/KG, BIW
     Route: 065
     Dates: start: 20230817, end: 20230908
  12. ISATUXIMAB [Suspect]
     Active Substance: ISATUXIMAB
     Dosage: 20 MILLIGRAM/KILOGRAM, QWK, 10 MG/KG, BIW
     Route: 065
     Dates: start: 20230921, end: 20231013
  13. ISATUXIMAB [Suspect]
     Active Substance: ISATUXIMAB
     Dosage: 20 MILLIGRAM/KILOGRAM, QWK, 10 MG/KG, BIW
     Route: 065
     Dates: start: 20231026, end: 20231109
  14. ISATUXIMAB [Suspect]
     Active Substance: ISATUXIMAB
     Dosage: 20 MILLIGRAM/KILOGRAM, 10 MG/KG, BIW
     Route: 065
     Dates: start: 20231124, end: 20231204
  15. DEXAMETHASONE [Suspect]
     Active Substance: DEXAMETHASONE
     Indication: Plasma cell myeloma
     Dosage: 20 MILLIGRAM, QWK
     Route: 065
     Dates: start: 20230622, end: 20230713
  16. DEXAMETHASONE [Suspect]
     Active Substance: DEXAMETHASONE
     Dosage: 20 MILLIGRAM, QWK
     Route: 065
     Dates: start: 20230720, end: 20230810
  17. DEXAMETHASONE [Suspect]
     Active Substance: DEXAMETHASONE
     Dosage: 20 MILLIGRAM, 2 TIMES/WK
     Route: 065
     Dates: start: 20230817, end: 20230908
  18. DEXAMETHASONE [Suspect]
     Active Substance: DEXAMETHASONE
     Dosage: 20 MILLIGRAM, 2 TIMES/WK
     Route: 065
     Dates: start: 20230921, end: 20231013
  19. DEXAMETHASONE [Suspect]
     Active Substance: DEXAMETHASONE
     Dosage: 20 MILLIGRAM, 2 TIMES/WK
     Route: 065
     Dates: start: 20231026, end: 20231109
  20. ISATUXIMAB-IRFC [Suspect]
     Active Substance: ISATUXIMAB-IRFC
     Indication: Product used for unknown indication
     Route: 065
  21. ASPIRIN [Concomitant]
     Active Substance: ASPIRIN
     Indication: Cerebrovascular accident
     Route: 065
     Dates: start: 19860715, end: 20231228
  22. MOXONIDINE [Concomitant]
     Active Substance: MOXONIDINE
     Indication: Hypertension
     Route: 065
     Dates: start: 20230705, end: 20230907
  23. VALACYCLOVIR HYDROCHLORIDE [Concomitant]
     Active Substance: VALACYCLOVIR HYDROCHLORIDE
     Indication: Prophylaxis
     Route: 065
     Dates: start: 20230622, end: 20231228
  24. SPIRONOLACTONE [Concomitant]
     Active Substance: SPIRONOLACTONE
     Indication: Hypertension
     Route: 065
     Dates: start: 20220317, end: 20231228
  25. BISOPROLOL [Concomitant]
     Active Substance: BISOPROLOL
     Indication: Hypertension
     Route: 065
     Dates: start: 19860715, end: 20231228
  26. Lercanidipin Q [Concomitant]
     Indication: Hypertension
     Route: 065
     Dates: start: 19860715, end: 20231228
  27. RANEXA [Concomitant]
     Active Substance: RANOLAZINE
     Indication: Acute myocardial infarction
     Route: 065
     Dates: start: 20210907, end: 20231228
  28. HUMAN RED BLOOD CELL [Concomitant]
     Active Substance: HUMAN RED BLOOD CELL
     Indication: Anaemia
     Route: 065
     Dates: start: 20230623, end: 20231124
  29. HYDROMORPHONE [Concomitant]
     Active Substance: HYDROMORPHONE
     Indication: Pain prophylaxis
     Route: 065
     Dates: start: 20220915
  30. QUETIAPINE [Concomitant]
     Active Substance: QUETIAPINE
     Indication: Plasma cell myeloma
     Route: 065
     Dates: start: 20210907, end: 20231228
  31. COTRIM [Concomitant]
     Active Substance: SULFAMETHOXAZOLE\TRIMETHOPRIM
     Indication: Prophylaxis
     Route: 065
     Dates: start: 20230622, end: 20231228
  32. TORSEMIDE [Concomitant]
     Active Substance: TORSEMIDE
     Indication: Hypertension
     Route: 065
     Dates: start: 20230612, end: 20231228
  33. VENLAFAXINE [Concomitant]
     Active Substance: VENLAFAXINE HYDROCHLORIDE
     Indication: Plasma cell myeloma
     Route: 065
     Dates: start: 20210907, end: 20231228
  34. PLATELETS [Concomitant]
     Active Substance: HUMAN PLATELET, ALLOGENIC
     Route: 065
     Dates: start: 20230910
  35. POLYETHYLENE GLYCOLS [Concomitant]
     Active Substance: POLYETHYLENE GLYCOLS
     Indication: Constipation prophylaxis
     Route: 065
     Dates: start: 20210910, end: 20231228
  36. LEVOFLOXACIN [Concomitant]
     Active Substance: LEVOFLOXACIN
     Route: 065
     Dates: start: 20230707
  37. ZOFRAN [Concomitant]
     Active Substance: ONDANSETRON HYDROCHLORIDE
     Route: 065
     Dates: start: 20230825
  38. PANTOPRAZOLE [Concomitant]
     Active Substance: PANTOPRAZOLE
     Indication: Prophylaxis
     Route: 065
     Dates: start: 20210914, end: 20231228
  39. RAMIPRIL [Concomitant]
     Active Substance: RAMIPRIL
     Indication: Hypertension
     Route: 065
     Dates: start: 19860715, end: 20231228
  40. METAMIZOLE [Concomitant]
     Active Substance: METAMIZOLE
     Indication: Pain management
     Route: 065
     Dates: start: 20210907, end: 20231228
  41. ZOMETA [Concomitant]
     Active Substance: ZOLEDRONIC ACID
     Indication: Prophylaxis
     Route: 065
     Dates: start: 20210929, end: 20231026
  42. NOXAFIL [Concomitant]
     Active Substance: POSACONAZOLE
     Route: 065
     Dates: start: 20230707
  43. ATORVASTATIN [Concomitant]
     Active Substance: ATORVASTATIN
     Indication: Hyperlipidaemia
     Route: 065
     Dates: start: 19860715, end: 20231228
  44. NIFEDIPINE [Concomitant]
     Active Substance: NIFEDIPINE
     Indication: Hypertension
     Route: 065
     Dates: start: 20230911, end: 20231228
  45. AMLODIPINE [Concomitant]
     Active Substance: AMLODIPINE BESYLATE
     Indication: Hypertension
     Route: 065
     Dates: start: 20230912, end: 20231228
  46. ERYTHROPOIETIN [Concomitant]
     Active Substance: ERYTHROPOIETIN
     Indication: Anaemia
     Route: 065
     Dates: start: 20231124, end: 20231206

REACTIONS (17)
  - Disease progression [Fatal]
  - Plasma cell myeloma [Fatal]
  - Infection [Recovered/Resolved]
  - Urinary tract infection [Recovered/Resolved]
  - Tumour lysis syndrome [Recovering/Resolving]
  - Infection [Recovered/Resolved]
  - Generalised oedema [Recovering/Resolving]
  - Pyrexia [Recovered/Resolved]
  - Infection [Recovered/Resolved]
  - Platelet count decreased [Not Recovered/Not Resolved]
  - White blood cell count decreased [Not Recovered/Not Resolved]
  - White blood cell count decreased [Not Recovered/Not Resolved]
  - Nausea [Recovered/Resolved]
  - Stomatitis [Recovered/Resolved]
  - Folate deficiency [Recovering/Resolving]
  - Hypotension [Recovered/Resolved]
  - Arthralgia [Not Recovered/Not Resolved]

NARRATIVE: CASE EVENT DATE: 20230623
